FAERS Safety Report 5912368-5 (Version None)
Quarter: 2008Q4

REPORT INFORMATION
  Report Type: 
  Country: None (occurrence: None)
  Receive Date: 20081006
  Receipt Date: 20080918
  Transmission Date: 20090506
  Serious: Yes (Hospitalization)
  Sender: FDA-Public Use
  Company Number: ADE2008-0308

PATIENT
  Age: 81 Year
  Sex: Male

DRUGS (9)
  1. AMLODIPINE [Suspect]
  2. ATENOLOL [Suspect]
  3. LISINOPRIL [Suspect]
  4. OLMESARTAN MEDOXOMIL [Suspect]
     Dosage: PO
     Route: 048
  5. OMEPRAZOLE [Suspect]
     Dosage: 40 MG- DAILY
  6. ASPIRIN [Concomitant]
  7. ATORVASTATIN CALCIUM [Concomitant]
  8. ISOSORBIDE MONONITRATE [Concomitant]
  9. QUININE [Concomitant]

REACTIONS (16)
  - ATRIAL FLUTTER [None]
  - BALANCE DISORDER [None]
  - DIZZINESS [None]
  - ELECTROLYTE IMBALANCE [None]
  - FALL [None]
  - HYPOCALCAEMIA [None]
  - HYPOKALAEMIA [None]
  - HYPOMAGNESAEMIA [None]
  - MUSCLE SPASMS [None]
  - NAUSEA [None]
  - PARAESTHESIA [None]
  - POLYURIA [None]
  - TROUSSEAU'S SYNDROME [None]
  - URINARY INCONTINENCE [None]
  - URINARY TRACT INFECTION [None]
  - VOMITING [None]
